FAERS Safety Report 15074633 (Version 1)
Quarter: 2018Q2

REPORT INFORMATION
  Report Type: Spontaneous
  Country: US (occurrence: US)
  Receive Date: 20180627
  Receipt Date: 20180627
  Transmission Date: 20180711
  Serious: Yes (Other)
  Sender: FDA-Public Use
  Company Number: US-SAOL THERAPEUTICS-2018SAO00464

PATIENT
  Age: 46 Year
  Sex: Female

DRUGS (4)
  1. LIORESAL [Suspect]
     Active Substance: BACLOFEN
     Dosage: 34 ?G, \DAY
     Route: 037
  2. BUPIVACAINE. [Suspect]
     Active Substance: BUPIVACAINE
     Dosage: 0.148 MG, \DAY, MIN RATE
     Route: 037
  3. BUPIVACAINE. [Suspect]
     Active Substance: BUPIVACAINE
     Dosage: 13 MG, \DAY
     Route: 037
  4. LIORESAL [Suspect]
     Active Substance: BACLOFEN
     Dosage: 0.386 ?G, \DAY, MIN RATE
     Route: 037

REACTIONS (4)
  - Hypoaesthesia [Unknown]
  - Malaise [Unknown]
  - Device failure [Unknown]
  - Off label use [Unknown]

NARRATIVE: CASE EVENT DATE: 20180328
